FAERS Safety Report 8302870-3 (Version None)
Quarter: 2012Q2

REPORT INFORMATION
  Report Type: 
  Country: None (occurrence: None)
  Receive Date: 20120420
  Receipt Date: 20120416
  Transmission Date: 20120825
  Serious: Yes (Hospitalization, Congenital Anomaly, Other)
  Sender: FDA-Public Use
  Company Number: US-PFIZER INC-2011105464

PATIENT
  Sex: Male
  Weight: 3.7 kg

DRUGS (5)
  1. MULTI-VITAMINS [Concomitant]
     Dosage: UNK
     Route: 064
     Dates: start: 20040311
  2. ZOLOFT [Suspect]
     Dosage: 100 MG, TWO TABLETS DAILY
     Route: 064
  3. ASPIRIN [Concomitant]
     Dosage: UNK
     Route: 064
     Dates: start: 20040311
  4. ZOLOFT [Suspect]
     Dosage: UNK
     Route: 064
     Dates: start: 20040311
  5. ZOLOFT [Suspect]
     Dosage: 150 MG, 1X/DAY
     Route: 064
     Dates: start: 20030908

REACTIONS (6)
  - ATELECTASIS [None]
  - FOETAL EXPOSURE DURING PREGNANCY [None]
  - PERSISTENT FOETAL CIRCULATION [None]
  - PULMONARY VEIN OCCLUSION [None]
  - FEEDING DISORDER NEONATAL [None]
  - NEONATAL ASPIRATION [None]
